FAERS Safety Report 5326516-1 (Version None)
Quarter: 2007Q2

REPORT INFORMATION
  Report Type: 
  Country: None (occurrence: None)
  Receive Date: 20070516
  Receipt Date: 20070508
  Transmission Date: 20071010
  Serious: Yes (Hospitalization)
  Sender: FDA-Public Use
  Company Number: CN-ASTRAZENECA-2007AP02651

PATIENT
  Age: 86 Year
  Sex: Female

DRUGS (3)
  1. LOSEC [Suspect]
     Indication: OESOPHAGITIS
     Route: 048
     Dates: start: 19890101
  2. CIMETIDINE HCL [Concomitant]
  3. RANITIDINE [Concomitant]

REACTIONS (1)
  - RENAL FAILURE [None]
